FAERS Safety Report 8570319-1 (Version None)
Quarter: 2012Q3

REPORT INFORMATION
  Report Type: 
  Country: None (occurrence: None)
  Receive Date: 20120803
  Receipt Date: 20120803
  Transmission Date: 20120928
  Serious: Yes (Hospitalization)
  Sender: FDA-Public Use
  Company Number: US-AMGEN-KDC385157

PATIENT
  Age: 65 Year
  Sex: Female
  Weight: 81.3 kg

DRUGS (4)
  1. SEVELAMER [Concomitant]
     Dosage: 3200 MG, TID
  2. IBUPROFEN [Suspect]
     Dosage: 600 MG, UNK
     Dates: start: 20091209
  3. ASPIRIN [Suspect]
     Dosage: 81 MG, QD
     Route: 048
     Dates: start: 20080306, end: 20100109
  4. CINACALCET HYDROCHLORIDE [Suspect]
     Indication: HYPERPARATHYROIDISM SECONDARY
     Dosage: UNK UNK, QD
     Route: 048
     Dates: start: 20080124

REACTIONS (2)
  - DIEULAFOY'S VASCULAR MALFORMATION [None]
  - GASTROINTESTINAL HAEMORRHAGE [None]
